FAERS Safety Report 5233682-5 (Version None)
Quarter: 2007Q1

REPORT INFORMATION
  Report Type: 
  Country: None (occurrence: None)
  Receive Date: 20070208
  Receipt Date: 20070202
  Transmission Date: 20070707
  Serious: Yes (Life-Threatening, Hospitalization)
  Sender: FDA-Public Use
  Company Number: FR-AVENTIS-200614049FR

PATIENT
  Age: 27 Year
  Sex: Female

DRUGS (2)
  1. LANTUS [Suspect]
     Route: 058
     Dates: start: 20060601
  2. HUMALOG [Concomitant]
     Route: 058
     Dates: start: 20060509

REACTIONS (2)
  - FOETAL DISTRESS SYNDROME [None]
  - RESPIRATORY ARREST [None]
